FAERS Safety Report 4353448-8 (Version None)
Quarter: 2004Q2

REPORT INFORMATION
  Report Type: 
  Country: None (occurrence: None)
  Receive Date: 20040505
  Receipt Date: 20040505
  Transmission Date: 20050107
  Serious: Yes (Hospitalization)
  Sender: FDA-Public Use
  Company Number: None

PATIENT
  Age: 71 Year
  Sex: Male
  Weight: 101.6 kg

DRUGS (12)
  1. IBUPROFEN [Suspect]
     Indication: PAIN
     Dosage: ORAL
     Route: 048
     Dates: end: 20030929
  2. LANOXIN [Concomitant]
  3. HUMULIN N [Concomitant]
  4. FUROSEMIDE [Concomitant]
  5. SIMVASTATIN [Concomitant]
  6. DOCUSATE NA [Concomitant]
  7. GLIPIZIDE [Concomitant]
  8. ALBUTEROL [Concomitant]
  9. PROPOXPHENE N 100/APAP [Concomitant]
  10. AMITRIPTYLINE HCL [Concomitant]
  11. METOPROLOL TARTRATE [Concomitant]
  12. MILK OF MAGNESIA TAB [Concomitant]

REACTIONS (1)
  - RENAL FAILURE ACUTE [None]
